FAERS Safety Report 20861089 (Version 1)
Quarter: 2022Q2

REPORT INFORMATION
  Report Type: Spontaneous
  Country: US (occurrence: US)
  Receive Date: 20220523
  Receipt Date: 20220523
  Transmission Date: 20220721
  Serious: No
  Sender: FDA-Public Use
  Company Number: US-APOTEX-2022AP006074

PATIENT
  Sex: Female

DRUGS (2)
  1. FENTANYL TRANSDERMAL SYSTEM [Suspect]
     Active Substance: FENTANYL
     Indication: Pain
     Dosage: 1 DOSAGE FORM (FREQUENCY EVERY 72 HOURS)
     Route: 062
  2. OXYCODONE [Concomitant]
     Active Substance: OXYCODONE
     Indication: Pain
     Dosage: 1 DOSAGE FORM, Q.4H.
     Route: 065

REACTIONS (3)
  - Product adhesion issue [Unknown]
  - Wrong technique in product usage process [Unknown]
  - No adverse event [Unknown]
